FAERS Safety Report 7706844-2 (Version None)
Quarter: 2011Q3

REPORT INFORMATION
  Report Type: 
  Country: None (occurrence: None)
  Receive Date: 20110824
  Receipt Date: 20110810
  Transmission Date: 20111222
  Serious: Yes (Hospitalization)
  Sender: FDA-Public Use
  Company Number: US-GLAXOSMITHKLINE-A0834444A

PATIENT
  Age: 50 Year
  Sex: Female
  Weight: 131.8 kg

DRUGS (2)
  1. AVANDIA [Suspect]
     Indication: DIABETES MELLITUS
     Dosage: 4MG PER DAY
     Route: 048
     Dates: start: 20060421, end: 20070520
  2. AVANDAMET [Suspect]
     Indication: DIABETES MELLITUS

REACTIONS (1)
  - CHEST PAIN [None]
